FAERS Safety Report 8171591-2 (Version None)
Quarter: 2012Q1

REPORT INFORMATION
  Report Type: 
  Country: None (occurrence: None)
  Receive Date: 20120107
  Receipt Date: 20111111
  Transmission Date: 20120608
  Serious: No
  Sender: FDA-Public Use
  Company Number: 2011HGS-002787

PATIENT
  Age: 56 Year
  Sex: Female
  Weight: 72.5755 kg

DRUGS (12)
  1. PREDNISONE TAB [Concomitant]
  2. BYSTOLIC [Concomitant]
  3. GABAPENTIN [Concomitant]
  4. AZATHIOPRINE [Concomitant]
  5. PAROXETINE HCL (PAROXETINE HYDROCHLORIDE) [Concomitant]
  6. OPANA [Concomitant]
  7. FEMARA [Concomitant]
  8. LOSARTAN POTASSIUM [Concomitant]
  9. BENLYSTA [Suspect]
     Dosage: 1 IN 28 D, INTRAVENOUS DRIP
     Route: 041
     Dates: start: 20110901
  10. PLAQUENIL [Concomitant]
  11. PENTOXIFYLLINE [Concomitant]
  12. NEXIUM [Concomitant]

REACTIONS (3)
  - HEADACHE [None]
  - COLD SWEAT [None]
  - NAUSEA [None]
